FAERS Safety Report 4786691-4 (Version None)
Quarter: 2005Q4

REPORT INFORMATION
  Report Type: 
  Country: None (occurrence: None)
  Receive Date: 20051004
  Receipt Date: 20050901
  Transmission Date: 20060501
  Serious: Yes (Hospitalization)
  Sender: FDA-Public Use
  Company Number: DE-BOEHRINGER INGELHEIM PHARMACEUTICALS, INC.-2005-DE-03530DE

PATIENT
  Age: 35 Year
  Sex: Female
  Weight: 80 kg

DRUGS (2)
  1. MOBEC 15 MG TABLETTEN [Suspect]
     Dosage: 1X10  TABLETS
     Route: 048
  2. TRAMADOL [Suspect]
     Dosage: 1X5 ML; STRENGTH: 1 ML/100 MG TRAMADOL-HCL
     Route: 048

REACTIONS (4)
  - DRUG ABUSER [None]
  - FATIGUE [None]
  - SUICIDE ATTEMPT [None]
  - VOMITING [None]
